FAERS Safety Report 5219984-7 (Version None)
Quarter: 2007Q1

REPORT INFORMATION
  Report Type: 
  Country: None (occurrence: None)
  Receive Date: 20070125
  Receipt Date: 20070117
  Transmission Date: 20070707
  Serious: Yes (Other)
  Sender: FDA-Public Use
  Company Number: US-PFIZER INC-2007006042

PATIENT
  Age: 36 Year
  Sex: Female

DRUGS (2)
  1. VIRACEPT [Suspect]
     Indication: HIV TEST POSITIVE
     Dosage: TEXT:2500
     Route: 048
  2. COMBIVIR [Suspect]
     Indication: HIV TEST POSITIVE
     Dosage: TEXT:900
     Route: 048

REACTIONS (1)
  - STILLBIRTH [None]
